FAERS Safety Report 8116481-6 (Version None)
Quarter: 2012Q1

REPORT INFORMATION
  Report Type: 
  Country: None (occurrence: None)
  Receive Date: 20120206
  Receipt Date: 20120130
  Transmission Date: 20120608
  Serious: Yes (Hospitalization, Other)
  Sender: FDA-Public Use
  Company Number: NZ-ABBOTT-11P-118-0882762-00

PATIENT
  Sex: Male

DRUGS (3)
  1. LEUPROLIDE ACETATE [Suspect]
     Route: 050
  2. LEUPROLIDE ACETATE [Suspect]
     Indication: PROSTATE CANCER
     Dates: start: 20110905, end: 20110905
  3. LEUPROLIDE ACETATE [Suspect]
     Dosage: TREATED WITH LUCRIN INTERMITTENTLY
     Dates: start: 20111007, end: 20111007

REACTIONS (3)
  - DYSPNOEA [None]
  - CARDIAC DISORDER [None]
  - MYOCARDIAL INFARCTION [None]
